FAERS Safety Report 13386281 (Version 1)
Quarter: 2017Q1

REPORT INFORMATION
  Report Type: Spontaneous
  Country: US (occurrence: US)
  Receive Date: 20170330
  Receipt Date: 20170330
  Transmission Date: 20170429
  Serious: No
  Sender: FDA-Public Use
  Company Number: US-PFIZER INC-2017130228

PATIENT
  Sex: Female

DRUGS (1)
  1. XELJANZ [Suspect]
     Active Substance: TOFACITINIB CITRATE
     Dosage: 5 MG, UNK

REACTIONS (11)
  - Tenderness [Unknown]
  - Myalgia [Unknown]
  - Swelling [Unknown]
  - Fatigue [Unknown]
  - Dyspepsia [Unknown]
  - Malaise [Unknown]
  - Headache [Unknown]
  - Muscle spasms [Unknown]
  - Musculoskeletal stiffness [Unknown]
  - Condition aggravated [Unknown]
  - Weight decreased [Unknown]
